FAERS Safety Report 8759283 (Version 1)
Quarter: 2012Q4

REPORT INFORMATION
  Report Type: Report from Study
  Country: CA (occurrence: CA)
  Receive Date: 20120829
  Receipt Date: 20120829
  Transmission Date: 20130627
  Serious: Yes (Hospitalization)
  Sender: FDA-Public Use
  Company Number: CA-ABBOTT-12P-028-0972179-00

PATIENT
  Sex: Male

DRUGS (4)
  1. HUMIRA 40 MG/0.8 ML PEN [Suspect]
     Indication: CROHN^S DISEASE
     Route: 058
     Dates: start: 20110104, end: 2012
  2. HUMIRA 40 MG/0.8 ML PEN [Suspect]
     Dates: start: 20120728, end: 20120728
  3. HUMIRA 40 MG/0.8 ML PEN [Suspect]
     Dates: start: 20120811, end: 20120811
  4. HUMIRA 40 MG/0.8 ML PEN [Suspect]
     Dates: start: 20120818

REACTIONS (1)
  - Intestinal stenosis [Not Recovered/Not Resolved]
